FAERS Safety Report 16353282 (Version 1)
Quarter: 2019Q2

REPORT INFORMATION
  Report Type: Report from Study
  Country: GB (occurrence: GB)
  Receive Date: 20190524
  Receipt Date: 20190524
  Transmission Date: 20190711
  Serious: Yes (Hospitalization)
  Sender: FDA-Public Use
  Company Number: GB-ROCHE-1292748

PATIENT
  Age: 70 Year
  Sex: Female
  Weight: 57 kg

DRUGS (16)
  1. RITUXIMAB. [Suspect]
     Active Substance: RITUXIMAB
     Route: 042
  2. LEVOFLOXACIN. [Concomitant]
     Active Substance: LEVOFLOXACIN
     Route: 065
     Dates: start: 20130728, end: 20130814
  3. CEFEPIME [Concomitant]
     Active Substance: CEFEPIME HYDROCHLORIDE
     Route: 065
     Dates: start: 20130726, end: 20130813
  4. VALACYCLOVIR [Concomitant]
     Active Substance: VALACYCLOVIR HYDROCHLORIDE
     Route: 065
     Dates: start: 20130821
  5. RITUXIMAB. [Suspect]
     Active Substance: RITUXIMAB
     Indication: B-CELL LYMPHOMA
     Route: 042
  6. NYSTATIN. [Concomitant]
     Active Substance: NYSTATIN
     Route: 065
     Dates: start: 201308, end: 20130821
  7. ENOXAPARIN [Concomitant]
     Active Substance: ENOXAPARIN
     Route: 065
     Dates: start: 20130726, end: 20130814
  8. LINEZOLID. [Concomitant]
     Active Substance: LINEZOLID
     Route: 065
     Dates: start: 20130728, end: 20130814
  9. PARACETAMOL [Concomitant]
     Active Substance: ACETAMINOPHEN
  10. FLUDARABINE [Suspect]
     Active Substance: FLUDARABINE PHOSPHATE
     Indication: B-CELL LYMPHOMA
     Route: 065
  11. FILGRASTIM [Concomitant]
     Active Substance: FILGRASTIM
     Route: 065
     Dates: start: 20130726, end: 20130814
  12. OXYGEN. [Concomitant]
     Active Substance: OXYGEN
     Dosage: 2-4 LITER
     Route: 065
     Dates: start: 20130726, end: 20130814
  13. PANTOPRAZOLE [Concomitant]
     Active Substance: PANTOPRAZOLE
     Route: 065
     Dates: start: 201308, end: 20130814
  14. VORICONAZOLE. [Concomitant]
     Active Substance: VORICONAZOLE
     Route: 065
     Dates: start: 201308, end: 20130813
  15. CHLORPHENIRAMINE [CHLORPHENAMINE] [Concomitant]
     Active Substance: CHLORPHENIRAMINE
     Route: 065
     Dates: start: 201308, end: 20130814
  16. CYCLOPHOSPHAMIDE. [Suspect]
     Active Substance: CYCLOPHOSPHAMIDE
     Indication: B-CELL LYMPHOMA
     Route: 065

REACTIONS (3)
  - Febrile neutropenia [Recovered/Resolved]
  - Bronchiectasis [Recovered/Resolved with Sequelae]
  - Lung infection [Recovered/Resolved]

NARRATIVE: CASE EVENT DATE: 20130726
